FAERS Safety Report 11911643 (Version 1)
Quarter: 2016Q1

REPORT INFORMATION
  Report Type: Spontaneous
  Country: GB (occurrence: GB)
  Receive Date: 20160112
  Receipt Date: 20160112
  Transmission Date: 20160526
  Serious: Yes (Disabling)
  Sender: FDA-Public Use
  Company Number: PHHY2015GB171445

PATIENT
  Age: 70 Year
  Sex: Female
  Weight: 65 kg

DRUGS (1)
  1. SERTRALINE [Suspect]
     Active Substance: SERTRALINE HYDROCHLORIDE
     Indication: PRODUCT USED FOR UNKNOWN INDICATION
     Dosage: 100 MG
     Route: 048
     Dates: start: 20150226, end: 20151111

REACTIONS (1)
  - Parkinsonian gait [Recovered/Resolved]

NARRATIVE: CASE EVENT DATE: 201503
